FAERS Safety Report 9377653 (Version 2)
Quarter: 2013Q3

REPORT INFORMATION
  Report Type: Spontaneous
  Country: JP (occurrence: JP)
  Receive Date: 20130701
  Receipt Date: 20130703
  Transmission Date: 20140515
  Serious: Yes (Hospitalization)
  Sender: FDA-Public Use
  Company Number: JP-VERTEX PHARMACEUTICALS INC-2013-007580

PATIENT
  Age: 63 Year
  Sex: Male

DRUGS (10)
  1. TELAVIC [Suspect]
     Indication: CHRONIC HEPATITIS C
     Dosage: 1500 MG, QD
     Route: 048
     Dates: start: 20130306, end: 20130327
  2. TELAVIC [Suspect]
     Dosage: 1500 MG, QD
     Route: 048
     Dates: start: 20130411, end: 20130411
  3. REBETOL [Concomitant]
     Dosage: 600 MG, QD
     Route: 048
     Dates: start: 20130306, end: 20130327
  4. REBETOL [Concomitant]
     Dosage: 600 MG, QD
     Route: 048
     Dates: start: 20130411, end: 20130411
  5. REBETOL [Concomitant]
     Dosage: 600 MG, QD
     Route: 048
     Dates: start: 20130417
  6. PEGINTRON [Concomitant]
     Dosage: 1.5 ?G/KG, QW
     Route: 058
     Dates: start: 20130306, end: 20130327
  7. PEGINTRON [Concomitant]
     Dosage: 1.5 ?G/KG, QW
     Dates: start: 20130417
  8. URSO [Concomitant]
     Dosage: 100 MG, QD
     Route: 048
  9. DIOVAN [Concomitant]
     Dosage: 80 MG, QD
     Route: 048
  10. AMLODIN [Concomitant]
     Dosage: 5 MG, QD
     Route: 048

REACTIONS (1)
  - Pneumonia legionella [Recovered/Resolved]
